FAERS Safety Report 18999844 (Version 1)
Quarter: 2021Q1

REPORT INFORMATION
  Report Type: Spontaneous
  Country: PL (occurrence: PL)
  Receive Date: 20210311
  Receipt Date: 20210311
  Transmission Date: 20210420
  Serious: Yes (Other)
  Sender: FDA-Public Use
  Company Number: PL-PFIZER INC-2021242540

PATIENT
  Sex: Male
  Weight: 75 kg

DRUGS (4)
  1. FLUOROURACIL MEDAC [Suspect]
     Active Substance: FLUOROURACIL
     Dosage: 780 MG
     Route: 040
     Dates: start: 20181016
  2. CAMPTO [Suspect]
     Active Substance: IRINOTECAN
     Indication: RECTAL CANCER
     Dosage: 351 MG
     Route: 042
     Dates: start: 20181016
  3. LEVOFOLIC [Concomitant]
     Active Substance: LEUCOVORIN
  4. FLUOROURACIL MEDAC [Suspect]
     Active Substance: FLUOROURACIL
     Indication: RECTAL CANCER
     Dosage: 2340 MG
     Route: 041
     Dates: start: 20181016

REACTIONS (4)
  - Hiccups [Recovering/Resolving]
  - Asthenia [Recovering/Resolving]
  - Neutropenia [Recovering/Resolving]
  - Diarrhoea [Recovering/Resolving]

NARRATIVE: CASE EVENT DATE: 20181030
